FAERS Safety Report 11267509 (Version 2)
Quarter: 2015Q3

REPORT INFORMATION
  Report Type: Spontaneous
  Country: US (occurrence: US)
  Receive Date: 20150713
  Receipt Date: 20150724
  Transmission Date: 20151125
  Serious: No
  Sender: FDA-Public Use
  Company Number: US-B.I. PHARMACEUTICALS,INC./RIDGEFIELD-2015-BI-35678BP

PATIENT
  Sex: Female
  Weight: 74.39 kg

DRUGS (13)
  1. NORCO [Concomitant]
     Active Substance: ACETAMINOPHEN\HYDROCODONE BITARTRATE
     Indication: BACK PAIN
     Dosage: 15 MG
     Route: 065
  2. RAPAFLO [Concomitant]
     Active Substance: SILODOSIN
     Indication: BLADDER PROLAPSE
     Dosage: 8 MG
     Route: 065
     Dates: start: 201504
  3. BIOTIN [Concomitant]
     Active Substance: BIOTIN
     Indication: HAIR GROWTH ABNORMAL
     Route: 065
  4. BIOTIN [Concomitant]
     Active Substance: BIOTIN
     Indication: NAIL GROWTH ABNORMAL
  5. LOSARTAN. [Concomitant]
     Active Substance: LOSARTAN
     Indication: HYPERTENSION
     Dosage: 200 MG
     Route: 065
  6. NORCO [Concomitant]
     Active Substance: ACETAMINOPHEN\HYDROCODONE BITARTRATE
     Indication: ARTHRALGIA
  7. CALCIUM [Concomitant]
     Active Substance: CALCIUM
     Indication: NAIL GROWTH ABNORMAL
  8. IRON [Concomitant]
     Active Substance: IRON
     Indication: RED BLOOD CELL COUNT DECREASED
     Dosage: 56 MG
     Route: 065
  9. CARAFATE [Concomitant]
     Active Substance: SUCRALFATE
     Indication: GASTROOESOPHAGEAL REFLUX DISEASE
     Route: 065
     Dates: start: 201501
  10. NEXIUM [Concomitant]
     Active Substance: ESOMEPRAZOLE MAGNESIUM
     Indication: GASTROOESOPHAGEAL REFLUX DISEASE
     Dosage: 40 MG
     Route: 065
     Dates: start: 2014
  11. METOPROLOL [Concomitant]
     Active Substance: METOPROLOL
     Indication: HEART RATE INCREASED
     Dosage: 50 MG
     Route: 065
     Dates: start: 2012
  12. CALCIUM [Concomitant]
     Active Substance: CALCIUM
     Indication: HAIR GROWTH ABNORMAL
     Route: 065
  13. PRADAXA [Suspect]
     Active Substance: DABIGATRAN ETEXILATE MESYLATE
     Indication: ATRIAL FIBRILLATION
     Dosage: 150 MG
     Route: 048
     Dates: start: 2012

REACTIONS (7)
  - Post procedural haemorrhage [Unknown]
  - Neck injury [Unknown]
  - General physical health deterioration [Unknown]
  - Fall [Unknown]
  - Back disorder [Unknown]
  - Arthropathy [Unknown]
  - Fall [Unknown]

NARRATIVE: CASE EVENT DATE: 2013
